FAERS Safety Report 5102650-6 (Version None)
Quarter: 2006Q3

REPORT INFORMATION
  Report Type: 
  Country: None (occurrence: None)
  Receive Date: 20060912
  Receipt Date: 20060828
  Transmission Date: 20061208
  Serious: Yes (Hospitalization)
  Sender: FDA-Public Use
  Company Number: FR-KINGPHARMUSA00001-K200601099

PATIENT
  Age: 72 Year
  Sex: Female

DRUGS (1)
  1. SEPTRA [Suspect]
     Indication: PNEUMOCYSTIS JIROVECI PNEUMONIA

REACTIONS (15)
  - BLOOD CREATININE INCREASED [None]
  - BLOOD UREA INCREASED [None]
  - CONFUSIONAL STATE [None]
  - CYTOLYTIC HEPATITIS [None]
  - ENCEPHALITIS HERPES [None]
  - FACE OEDEMA [None]
  - HYPERSENSITIVITY [None]
  - LYMPHADENOPATHY [None]
  - NEUROLOGICAL SYMPTOM [None]
  - PANCYTOPENIA [None]
  - PYREXIA [None]
  - RASH MACULAR [None]
  - RENAL FAILURE [None]
  - SKIN ULCER [None]
  - TRANSAMINASES INCREASED [None]
